FAERS Safety Report 8399006-X (Version None)
Quarter: 2012Q2

REPORT INFORMATION
  Report Type: 
  Country: None (occurrence: None)
  Receive Date: 20120531
  Receipt Date: 20120517
  Transmission Date: 20120825
  Serious: Yes (Other)
  Sender: FDA-Public Use
  Company Number: CZ-UCBSA-057735

PATIENT
  Sex: Female

DRUGS (5)
  1. CIMZIA [Suspect]
     Dosage: NO. OF DOSES 20
     Route: 058
     Dates: start: 20101007, end: 20110908
  2. METOPROLOL TARTRATE [Concomitant]
     Indication: HYPERTENSION
     Route: 048
     Dates: start: 20020101
  3. LEVOTHYROXINE SODIUM [Concomitant]
     Indication: HYPOTHYROIDISM
     Route: 048
     Dates: start: 20080901
  4. CIMZIA [Suspect]
     Dosage: NO. OF DOSES RECEIVED : 16
     Route: 058
     Dates: start: 20110908, end: 20120510
  5. NIMESULID [Concomitant]
     Indication: PSORIATIC ARTHROPATHY
     Route: 048
     Dates: start: 20091111

REACTIONS (1)
  - BREAST CANCER [None]
